FAERS Safety Report 9026720 (Version 1)
Quarter: 2013Q1

REPORT INFORMATION
  Report Type: Spontaneous
  Country: US (occurrence: None)
  Receive Date: 20130114
  Receipt Date: 20130114
  Transmission Date: 20140127
  Serious: Yes (Life-Threatening)
  Sender: FDA-Public Use
  Company Number: None

PATIENT
  Sex: 0
  Weight: 92.08 kg

DRUGS (1)
  1. LANTUS [Suspect]
     Dosage: 50 UNIT AT BEDTIME
     Route: 058

REACTIONS (12)
  - Heart rate increased [None]
  - Headache [None]
  - Dizziness [None]
  - Chills [None]
  - Hunger [None]
  - Asthenia [None]
  - Swelling [None]
  - Pruritus [None]
  - Somnolence [None]
  - Confusional state [None]
  - Visual impairment [None]
  - Condition aggravated [None]
